FAERS Safety Report 7700768-2 (Version None)
Quarter: 2011Q3

REPORT INFORMATION
  Report Type: 
  Country: None (occurrence: None)
  Receive Date: 20110822
  Receipt Date: 20110609
  Transmission Date: 20111222
  Serious: Yes (Other)
  Sender: FDA-Public Use
  Company Number: US-AMGEN-USASP2011026864

PATIENT
  Age: 60 Year
  Sex: Male

DRUGS (6)
  1. NEUPOGEN [Suspect]
  2. NEULASTA [Suspect]
  3. FLUDARABINE PHOSPHATE [Concomitant]
  4. GEMTUZUMAB OZOGAMICIN [Concomitant]
  5. INSULIN [Concomitant]
  6. CYTARABINE [Concomitant]

REACTIONS (1)
  - BLAST CELLS PRESENT [None]
